FAERS Safety Report 4864479-3 (Version None)
Quarter: 2005Q4

REPORT INFORMATION
  Report Type: 
  Country: None (occurrence: None)
  Receive Date: 20051222
  Receipt Date: 20050830
  Transmission Date: 20060501
  Serious: Yes (Other)
  Sender: FDA-Public Use
  Company Number: GB-BRISTOL-MYERS SQUIBB COMPANY-13094867

PATIENT
  Age: 81 Year
  Sex: Female

DRUGS (2)
  1. MODECATE [Suspect]
  2. RISPERDAL [Concomitant]

REACTIONS (3)
  - CIRCULATORY COLLAPSE [None]
  - HYPOTENSION [None]
  - URINARY TRACT INFECTION [None]
